FAERS Safety Report 25690306 (Version 1)
Quarter: 2025Q3

REPORT INFORMATION
  Report Type: Spontaneous
  Country: US (occurrence: None)
  Receive Date: 20250815
  Receipt Date: 20250815
  Transmission Date: 20251021
  Serious: Yes (Death)
  Sender: FDA-CTU
  Company Number: None

PATIENT
  Sex: Female

DRUGS (11)
  1. PHOSPHOLINE IODIDE OPHTHALMIC [Suspect]
     Active Substance: ECHOTHIOPHATE IODIDE
     Indication: Glaucoma
     Dosage: INSTILL 1 DROP TO BOTH EYES AT BEDTIME?
     Route: 047
     Dates: start: 20221213
  2. AZOPT SUS 1% OP [Concomitant]
  3. BRIMONIDINE SOL 0.2% OP [Concomitant]
  4. BUMETANIDE INJ 0.25/ML [Concomitant]
  5. CLOTRIM/BETA CREDI PROP [Concomitant]
  6. DESONIDE OIN 0.05% [Concomitant]
  7. DIAZEPAM TAB 5MG [Concomitant]
  8. DIGOXIN TAB 0.25MG [Concomitant]
  9. DIURIL SUS 250/5ML [Concomitant]
  10. FLOVENT DISK AER 250MCG [Concomitant]
  11. FLUOXETINE TAB 20MG [Concomitant]

REACTIONS (1)
  - Death [None]
